FAERS Safety Report 4653002-4 (Version None)
Quarter: 2005Q2

REPORT INFORMATION
  Report Type: 
  Country: None (occurrence: None)
  Receive Date: 20050502
  Receipt Date: 20050502
  Transmission Date: 20051028
  Serious: No
  Sender: FDA-Public Use
  Company Number: None

PATIENT
  Sex: Male
  Weight: 93.9 kg

DRUGS (1)
  1. GEMCITABINE [Suspect]
     Dosage: 1000MG/M2 IV WEEKLY
     Route: 042
     Dates: start: 20050401

REACTIONS (5)
  - BILE DUCT OBSTRUCTION [None]
  - DEHYDRATION [None]
  - DISEASE PROGRESSION [None]
  - NAUSEA [None]
  - VOMITING [None]
